FAERS Safety Report 13804567 (Version 1)
Quarter: 2017Q3

REPORT INFORMATION
  Report Type: Report from Study
  Country: US (occurrence: US)
  Receive Date: 20170728
  Receipt Date: 20170728
  Transmission Date: 20171127
  Serious: Yes (Hospitalization)
  Sender: FDA-Public Use
  Company Number: US-ASTRAZENECA-2017SE75582

PATIENT
  Age: 776 Month
  Sex: Female
  Weight: 65.3 kg

DRUGS (2)
  1. SYMBICORT [Suspect]
     Active Substance: BUDESONIDE\FORMOTEROL FUMARATE DIHYDRATE
     Indication: CHRONIC OBSTRUCTIVE PULMONARY DISEASE
     Dosage: 160/4.5 MCG 2 PUFFS TWICE A DAY
     Route: 055
  2. SYMBICORT [Suspect]
     Active Substance: BUDESONIDE\FORMOTEROL FUMARATE DIHYDRATE
     Indication: PNEUMONITIS
     Dosage: 160/4.5 MCG 2 PUFFS TWICE A DAY
     Route: 055

REACTIONS (7)
  - Dyspnoea [Recovered/Resolved]
  - Pulmonary mycosis [Recovering/Resolving]
  - Electrolyte imbalance [Recovering/Resolving]
  - Product use in unapproved indication [Unknown]
  - Hypertension [Recovering/Resolving]
  - Respiratory tract infection [Recovering/Resolving]
  - Off label use [Unknown]

NARRATIVE: CASE EVENT DATE: 201609
